FAERS Safety Report 13775023 (Version 1)
Quarter: 2017Q3

REPORT INFORMATION
  Report Type: Spontaneous
  Country: US (occurrence: US)
  Receive Date: 20170720
  Receipt Date: 20170720
  Transmission Date: 20171127
  Serious: No
  Sender: FDA-Public Use
  Company Number: None

PATIENT
  Sex: Female

DRUGS (1)
  1. CAPECITABINE 500MG ACCORD HEALTHCARE, INC [Suspect]
     Active Substance: CAPECITABINE
     Indication: COLON CANCER
     Dosage: TWICE A DAY FOR 14 DAYS EVERY 21 DAYS
     Route: 048
     Dates: start: 20170531, end: 20170706

REACTIONS (3)
  - International normalised ratio increased [None]
  - Haematoma [None]
  - Therapy cessation [None]
